FAERS Safety Report 17750436 (Version 1)
Quarter: 2020Q2

REPORT INFORMATION
  Report Type: Report from Study
  Country: ES (occurrence: ES)
  Receive Date: 20200506
  Receipt Date: 20200506
  Transmission Date: 20200714
  Serious: Yes (Hospitalization)
  Sender: FDA-Public Use
  Company Number: ES-TEVA-2020-ES-1230311

PATIENT
  Age: 74 Year
  Sex: Female

DRUGS (4)
  1. PREDNISONA (886A) [Suspect]
     Active Substance: PREDNISONE
     Dosage: 20 MG
     Route: 048
     Dates: start: 201612
  2. IDEOS 500 MG/400 UI COMPRIMIDOS MASTICABLES  , 30 COMPRIMIDOS [Concomitant]
     Dosage: 600 MG
     Route: 048
     Dates: start: 20161231, end: 20170206
  3. ALPRAZOLAM (99A) [Concomitant]
     Active Substance: ALPRAZOLAM
     Dosage: 0.25 MG
     Route: 048
     Dates: start: 20161219
  4. SERTRALINA (2537A) [Concomitant]
     Active Substance: SERTRALINE HYDROCHLORIDE
     Dosage: 50 MG
     Route: 048
     Dates: start: 20161106

REACTIONS (1)
  - Pneumocystis jirovecii pneumonia [Recovered/Resolved]

NARRATIVE: CASE EVENT DATE: 201701
